FAERS Safety Report 6181009-7 (Version None)
Quarter: 2009Q2

REPORT INFORMATION
  Report Type: 
  Country: None (occurrence: None)
  Receive Date: 20090504
  Receipt Date: 20090504
  Transmission Date: 20091009
  Serious: Yes (Other)
  Sender: FDA-Public Use
  Company Number: None

PATIENT
  Age: 70 Year
  Sex: Female
  Weight: 54.4316 kg

DRUGS (1)
  1. ZOLPIDEM [Suspect]
     Indication: INSOMNIA
     Dosage: 10 MG ONE @ BEDTIME PO
     Route: 048
     Dates: start: 20090430, end: 20090501

REACTIONS (9)
  - DYSPNOEA [None]
  - OROPHARYNGEAL PAIN [None]
  - PHARYNGEAL OEDEMA [None]
  - POOR QUALITY SLEEP [None]
  - RESTLESSNESS [None]
  - SLEEP APNOEA SYNDROME [None]
  - SNORING [None]
  - TERMINAL INSOMNIA [None]
  - UNEVALUABLE EVENT [None]
